FAERS Safety Report 7818171-3 (Version None)
Quarter: 2011Q4

REPORT INFORMATION
  Report Type: 
  Country: None (occurrence: None)
  Receive Date: 20111017
  Receipt Date: 20111007
  Transmission Date: 20120403
  Serious: Yes (Hospitalization, Other)
  Sender: FDA-Public Use
  Company Number: US-ABBOTT-11P-163-0727546-00

PATIENT
  Sex: Female

DRUGS (5)
  1. RECLAST [Concomitant]
     Indication: OSTEOPOROSIS
     Route: 042
     Dates: start: 20110601, end: 20110601
  2. CELEBREX [Concomitant]
     Indication: ARTHRITIS
     Dosage: INCREASED AFTER FALL IN JUL 2009
  3. PERCOCET [Concomitant]
     Indication: PAIN
  4. HUMIRA [Suspect]
     Indication: PSORIASIS
     Route: 058
     Dates: start: 20080501, end: 20110817
  5. CELEBREX [Concomitant]

REACTIONS (9)
  - FEMUR FRACTURE [None]
  - FALL [None]
  - IMPAIRED HEALING [None]
  - LIGAMENT SPRAIN [None]
  - BLOOD PRESSURE INCREASED [None]
  - PSORIASIS [None]
  - MUSCULOSKELETAL STIFFNESS [None]
  - LOWER LIMB FRACTURE [None]
  - PAIN [None]
